APPROVED DRUG PRODUCT: ALPRAZOLAM
Active Ingredient: ALPRAZOLAM
Strength: 3MG
Dosage Form/Route: TABLET, EXTENDED RELEASE;ORAL
Application: A078056 | Product #004 | TE Code: AB
Applicant: ACTAVIS ELIZABETH LLC
Approved: Feb 13, 2007 | RLD: No | RS: No | Type: RX